FAERS Safety Report 16661958 (Version 5)
Quarter: 2019Q3

REPORT INFORMATION
  Report Type: Spontaneous
  Country: US (occurrence: US)
  Receive Date: 20190802
  Receipt Date: 20190923
  Transmission Date: 20191004
  Serious: Yes (Hospitalization, Other)
  Sender: FDA-Public Use
  Company Number: US-PFIZER INC-2019024666

PATIENT
  Age: 61 Year
  Sex: Male
  Weight: 82.86 kg

DRUGS (3)
  1. EFFEXOR [Concomitant]
     Active Substance: VENLAFAXINE HYDROCHLORIDE
     Dosage: 50 MG, 1X/DAY (EVERY NIGHT 1 QHS)
     Route: 048
  2. LYRICA [Suspect]
     Active Substance: PREGABALIN
     Indication: POLYNEUROPATHY
     Dosage: 450 MG, DAILY [TAKE ONE CAPSULE (150 MG) IN THE MORNING AND TWO CAPSULES (300 MG) AT NIGHT]
     Dates: end: 201909
  3. LYRICA [Suspect]
     Active Substance: PREGABALIN
     Indication: NEURALGIA
     Dosage: 150 MG, 3X/DAY
     Route: 048
     Dates: start: 20190108

REACTIONS (1)
  - Staphylococcal infection [Unknown]
